FAERS Safety Report 7974662-6 (Version None)
Quarter: 2011Q4

REPORT INFORMATION
  Report Type: 
  Country: None (occurrence: None)
  Receive Date: 20111213
  Receipt Date: 20111202
  Transmission Date: 20120403
  Serious: Yes (Other)
  Sender: FDA-Public Use
  Company Number: PHHY2011US106552

PATIENT
  Age: 61 Year
  Sex: Female

DRUGS (1)
  1. PAMIDRONATE DISODIUM [Suspect]
     Indication: BREAST CANCER

REACTIONS (5)
  - OSTEONECROSIS OF JAW [None]
  - BONE DENSITY DECREASED [None]
  - OSTEOSCLEROSIS [None]
  - BONE LESION [None]
  - PRIMARY SEQUESTRUM [None]
